FAERS Safety Report 7111538-0 (Version None)
Quarter: 2010Q4

REPORT INFORMATION
  Report Type: 
  Country: None (occurrence: None)
  Receive Date: 20101118
  Receipt Date: 20100125
  Transmission Date: 20110411
  Serious: Yes (Hospitalization)
  Sender: FDA-Public Use
  Company Number: US-TEVA-221898USA

PATIENT
  Sex: Female

DRUGS (1)
  1. ALBUTEROL SULFATE AUTOHALER [Suspect]
     Indication: ASTHMA
     Dosage: USED ONE DOSE ONLY
     Route: 055
     Dates: start: 20100119, end: 20100119

REACTIONS (3)
  - BRONCHOSPASM PARADOXICAL [None]
  - DYSPNOEA [None]
  - FALL [None]
